FAERS Safety Report 7215551-4 (Version None)
Quarter: 2011Q1

REPORT INFORMATION
  Report Type: 
  Country: None (occurrence: None)
  Receive Date: 20110107
  Receipt Date: 20110103
  Transmission Date: 20110831
  Serious: Yes (Hospitalization)
  Sender: FDA-Public Use
  Company Number: IT-SANOFI-AVENTIS-2011SA000057

PATIENT
  Age: 38 Year
  Sex: Female

DRUGS (3)
  1. PREDNISONE [Concomitant]
     Indication: BREAST CANCER
  2. EPIRUBICIN [Suspect]
     Indication: BREAST CANCER
     Route: 041
  3. DOCETAXEL [Suspect]
     Indication: BREAST CANCER
     Route: 041

REACTIONS (6)
  - VOMITING [None]
  - ENTEROCOLITIS [None]
  - NAUSEA [None]
  - MUSCULAR WEAKNESS [None]
  - ABDOMINAL PAIN [None]
  - NEUTROPENIA [None]
